FAERS Safety Report 9156018 (Version 1)
Quarter: 2013Q1

REPORT INFORMATION
  Report Type: Spontaneous
  Country: US (occurrence: US)
  Receive Date: 20130311
  Receipt Date: 20130311
  Transmission Date: 20140127
  Serious: Yes (Hospitalization, Other)
  Sender: FDA-Public Use
  Company Number: US-B.I. PHARMACEUTICALS,INC./RIDGEFIELD-2013-BI-05799BP

PATIENT
  Age: 71 Year
  Sex: Male

DRUGS (6)
  1. PRADAXA [Suspect]
     Indication: ATRIAL FIBRILLATION
     Dosage: 300 MG
     Route: 048
     Dates: start: 2010, end: 20130214
  2. DIOVAN [Concomitant]
     Indication: HYPERTENSION
  3. VERAPAMIL [Concomitant]
     Indication: SYSTOLIC HYPERTENSION
  4. PRISTIQ [Concomitant]
  5. ZETIA [Concomitant]
  6. ZOCOR [Concomitant]

REACTIONS (2)
  - Ischaemic stroke [Recovered/Resolved with Sequelae]
  - Transient ischaemic attack [Unknown]
